FAERS Safety Report 12611594 (Version 1)
Quarter: 2016Q3

REPORT INFORMATION
  Report Type: Spontaneous
  Country: IT (occurrence: IT)
  Receive Date: 20160801
  Receipt Date: 20160801
  Transmission Date: 20161109
  Serious: Yes (Life-Threatening, Other)
  Sender: FDA-Public Use
  Company Number: IT-PFIZER INC-2016365473

PATIENT
  Age: 80 Year
  Sex: Male

DRUGS (1)
  1. PIPERACILLIN/TAZOBACTAM [Suspect]
     Active Substance: PIPERACILLIN SODIUM\TAZOBACTAM SODIUM
     Indication: PNEUMONIA BACTERIAL
     Dosage: UNK

REACTIONS (4)
  - Pyrexia [Recovered/Resolved]
  - Toxic epidermal necrolysis [Recovering/Resolving]
  - Acute respiratory failure [Recovered/Resolved]
  - Renal failure [Recovered/Resolved]
